FAERS Safety Report 13700013 (Version 2)
Quarter: 2017Q3

REPORT INFORMATION
  Report Type: Spontaneous
  Country: US (occurrence: US)
  Receive Date: 20170629
  Receipt Date: 20170705
  Transmission Date: 20171127
  Serious: No
  Sender: FDA-Public Use
  Company Number: US-HORIZON-RAV-0182-2017

PATIENT
  Age: 2 Year
  Sex: Male

DRUGS (1)
  1. RAVICTI [Suspect]
     Active Substance: GLYCEROL PHENYLBUTYRATE
     Indication: ARGINASE DEFICIENCY
     Dosage: 2 ML, TID
     Dates: start: 201704

REACTIONS (2)
  - Decreased appetite [Unknown]
  - Skin odour abnormal [Not Recovered/Not Resolved]
